FAERS Safety Report 21573844 (Version 1)
Quarter: 2022Q4

REPORT INFORMATION
  Report Type: Spontaneous
  Country: US (occurrence: None)
  Receive Date: 20221108
  Receipt Date: 20221108
  Transmission Date: 20230113
  Serious: Yes (Hospitalization)
  Sender: FDA-Public Use
  Company Number: None

PATIENT
  Sex: Female

DRUGS (1)
  1. CAPECITABINE [Suspect]
     Active Substance: CAPECITABINE
     Dosage: 500 MG BID ORAL?
     Route: 048

REACTIONS (5)
  - Diarrhoea [None]
  - Pneumonia [None]
  - Weight decreased [None]
  - Decreased appetite [None]
  - Therapy interrupted [None]
